FAERS Safety Report 7032144-2 (Version None)
Quarter: 2010Q4

REPORT INFORMATION
  Report Type: 
  Country: None (occurrence: None)
  Receive Date: 20101007
  Receipt Date: 20091117
  Transmission Date: 20110411
  Serious: Yes (Hospitalization)
  Sender: FDA-Public Use
  Company Number: CA-BRISTOL-MYERS SQUIBB COMPANY-14862932

PATIENT
  Age: 74 Year
  Sex: Male

DRUGS (7)
  1. CETUXIMAB [Suspect]
     Indication: HEAD AND NECK CANCER
     Dosage: THEN LOADING 250MG/M2 WEEKLY X 2
     Route: 042
     Dates: start: 20091104
  2. RADIATION THERAPY [Suspect]
  3. AMLODIPINE [Concomitant]
     Route: 048
  4. CLINDAMYCIN [Concomitant]
  5. SENOKOT [Concomitant]
     Route: 048
  6. DEXAMETHASONE [Concomitant]
     Route: 048
  7. PANTOLOC [Concomitant]
     Route: 042

REACTIONS (1)
  - DUODENAL PERFORATION [None]
